FAERS Safety Report 20063944 (Version 4)
Quarter: 2022Q1

REPORT INFORMATION
  Report Type: Spontaneous
  Country: PT (occurrence: PT)
  Receive Date: 20211112
  Receipt Date: 20220304
  Transmission Date: 20220424
  Serious: Yes (Other)
  Sender: FDA-Public Use
  Company Number: None

PATIENT
  Age: 40 Year
  Sex: Female

DRUGS (1)
  1. GLECAPREVIR\PIBRENTASVIR [Suspect]
     Active Substance: GLECAPREVIR\PIBRENTASVIR
     Indication: Hepatitis C
     Dosage: 300MG/120MG
     Route: 048
     Dates: start: 20211011

REACTIONS (3)
  - Asthenia [Recovered/Resolved]
  - Headache [Recovered/Resolved]
  - Nausea [Recovered/Resolved]

NARRATIVE: CASE EVENT DATE: 20211013
